FAERS Safety Report 8198619-8 (Version None)
Quarter: 2012Q1

REPORT INFORMATION
  Report Type: 
  Country: None (occurrence: None)
  Receive Date: 20120307
  Receipt Date: 20120227
  Transmission Date: 20120608
  Serious: Yes (Other)
  Sender: FDA-Public Use
  Company Number: 2012SP010885

PATIENT
  Sex: Male

DRUGS (4)
  1. RIBAVIRIN [Suspect]
     Indication: HEPATITIS C
     Dates: start: 20111215
  2. RIBAVIRIN [Suspect]
     Indication: HEPATITIS C
     Dates: start: 19970101, end: 19971101
  3. PEG-INTRON [Suspect]
     Indication: HEPATITIS C
     Dates: start: 20111215
  4. PEG-INTRON [Suspect]
     Indication: HEPATITIS C
     Dates: start: 19970101, end: 19971101

REACTIONS (5)
  - OROPHARYNGEAL PAIN [None]
  - COLON CANCER [None]
  - HEPATITIS [None]
  - DISEASE RECURRENCE [None]
  - DYSPHAGIA [None]
